FAERS Safety Report 5645761-9 (Version None)
Quarter: 2008Q1

REPORT INFORMATION
  Report Type: 
  Country: None (occurrence: None)
  Receive Date: 20080131
  Receipt Date: 20071213
  Transmission Date: 20080703
  Serious: No
  Sender: FDA-Public Use
  Company Number: 163-21880-07120829

PATIENT
  Age: 69 Year
  Sex: Male
  Weight: 85.7298 kg

DRUGS (9)
  1. REVLIMID [Suspect]
     Indication: MULTIPLE MYELOMA
     Dosage: 25 MG, DAILY X 3 WEEKS, ORAL
     Route: 048
     Dates: start: 20071116
  2. ATIVAN [Concomitant]
  3. DEXAMETHASONE [Concomitant]
  4. OCUVITE (OCUVITE) (CAPSULES) [Concomitant]
  5. LIPITOR [Concomitant]
  6. ASA (ACETYLSALICYLIC ACID) (TABLETS) [Concomitant]
  7. OMEPRAZOLE [Concomitant]
  8. CIALIS [Concomitant]
  9. TESTIM (TESTOSTERONE) (50 MILLIGRAM, GEL) [Concomitant]

REACTIONS (3)
  - FATIGUE [None]
  - NIGHT SWEATS [None]
  - PYREXIA [None]
